FAERS Safety Report 25149812 (Version 1)
Quarter: 2025Q2

REPORT INFORMATION
  Report Type: Spontaneous
  Country: US (occurrence: None)
  Receive Date: 20250402
  Receipt Date: 20250402
  Transmission Date: 20250717
  Serious: Yes (Hospitalization)
  Sender: FDA-CTU
  Company Number: None

PATIENT
  Age: 40 Year
  Sex: Male
  Weight: 101.9 kg

DRUGS (3)
  1. CISPLATIN [Suspect]
     Active Substance: CISPLATIN
     Dates: end: 20200323
  2. IFOSFAMIDE [Suspect]
     Active Substance: IFOSFAMIDE
     Dates: end: 20200323
  3. TAXOL [Suspect]
     Active Substance: PACLITAXEL
     Dates: end: 20200323

REACTIONS (2)
  - COVID-19 [None]
  - Hepatic lesion [None]

NARRATIVE: CASE EVENT DATE: 20200410
